FAERS Safety Report 10386458 (Version 8)
Quarter: 2014Q4

REPORT INFORMATION
  Report Type: Spontaneous
  Country: TR (occurrence: TR)
  Receive Date: 20140815
  Receipt Date: 20141230
  Transmission Date: 20150528
  Serious: Yes (Death, Life-Threatening, Hospitalization)
  Sender: FDA-Public Use
  Company Number: TR-ASPEN PHARMA TRADING LIMITED US-AG-2014-004758

PATIENT
  Age: 63 Year
  Sex: Male

DRUGS (19)
  1. CHLORAMBUCIL [Suspect]
     Active Substance: CHLORAMBUCIL
     Dosage: CYCLE 1, DAY 15
     Route: 048
     Dates: start: 20140722, end: 20140722
  2. CHLORAMBUCIL [Suspect]
     Active Substance: CHLORAMBUCIL
     Dosage: CYCLE 2, DAY 15
     Route: 048
     Dates: start: 20140902, end: 20140902
  3. OBINUTUZUMAB [Suspect]
     Active Substance: OBINUTUZUMAB
     Indication: CHRONIC LYMPHOCYTIC LEUKAEMIA
     Dosage: CYCLE 1, DAY 1
     Route: 042
     Dates: start: 20140708, end: 20140708
  4. OBINUTUZUMAB [Suspect]
     Active Substance: OBINUTUZUMAB
     Dosage: CYCLE 1, DAY 15
     Route: 042
     Dates: start: 20140722, end: 20140722
  5. OBINUTUZUMAB [Suspect]
     Active Substance: OBINUTUZUMAB
     Dosage: CYCLE 2, DAY 1
     Route: 042
     Dates: start: 20140819
  6. OBINUTUZUMAB [Suspect]
     Active Substance: OBINUTUZUMAB
     Dosage: CYCLE 3, DAY 1
     Route: 042
     Dates: start: 20140912, end: 20140912
  7. CHLORAMBUCIL [Suspect]
     Active Substance: CHLORAMBUCIL
     Indication: CHRONIC LYMPHOCYTIC LEUKAEMIA
     Dosage: CYCLE 1, DAY 1
     Route: 048
     Dates: start: 20140708
  8. CHLORAMBUCIL [Suspect]
     Active Substance: CHLORAMBUCIL
     Route: 048
     Dates: start: 20141118, end: 20141118
  9. OBINUTUZUMAB [Suspect]
     Active Substance: OBINUTUZUMAB
     Dosage: CYCLE 1, DAY 2
     Route: 042
     Dates: start: 20140709, end: 20140709
  10. METHYLPREDNISOLONE. [Concomitant]
     Active Substance: METHYLPREDNISOLONE
     Indication: PRODUCT USED FOR UNKNOWN INDICATION
     Route: 042
     Dates: start: 20140708
  11. CHLORAMBUCIL [Suspect]
     Active Substance: CHLORAMBUCIL
     Dosage: CYCLE 2, DAY 1
     Route: 048
     Dates: start: 20140819, end: 20140819
  12. DICLOFENAC [Concomitant]
     Active Substance: DICLOFENAC
     Indication: PRODUCT USED FOR UNKNOWN INDICATION
     Route: 065
     Dates: start: 20140805, end: 20140818
  13. OBINUTUZUMAB [Suspect]
     Active Substance: OBINUTUZUMAB
     Dosage: CYCLE 1, DAY 8
     Route: 042
     Dates: start: 20140715, end: 20140715
  14. OBINUTUZUMAB [Suspect]
     Active Substance: OBINUTUZUMAB
     Dosage: CYCLE 4, DAY 1
     Route: 042
     Dates: start: 20141103, end: 20141103
  15. DEXAMETHASONE. [Concomitant]
     Active Substance: DEXAMETHASONE
     Indication: PRODUCT USED FOR UNKNOWN INDICATION
     Route: 042
     Dates: start: 20140708
  16. ALLOPURINOL. [Concomitant]
     Active Substance: ALLOPURINOL
     Indication: PRODUCT USED FOR UNKNOWN INDICATION
     Route: 048
     Dates: start: 20140708
  17. CHLORAMBUCIL [Suspect]
     Active Substance: CHLORAMBUCIL
     Dosage: CYCLE 3, DAY 2
     Route: 048
     Dates: start: 20140927, end: 20140927
  18. CHLORAMBUCIL [Suspect]
     Active Substance: CHLORAMBUCIL
     Dosage: CYCLE 4, DAY 1
     Route: 048
     Dates: start: 20141103, end: 20141103
  19. CHLORAMBUCIL [Suspect]
     Active Substance: CHLORAMBUCIL
     Dosage: CYCLE 3, DAY 1
     Route: 048
     Dates: start: 20140912, end: 20140912

REACTIONS (2)
  - Febrile neutropenia [Not Recovered/Not Resolved]
  - Pneumonia [Fatal]

NARRATIVE: CASE EVENT DATE: 20140717
